FAERS Safety Report 24730973 (Version 1)
Quarter: 2024Q4

REPORT INFORMATION
  Report Type: Spontaneous
  Country: US (occurrence: None)
  Receive Date: 20241212
  Receipt Date: 20241212
  Transmission Date: 20250114
  Serious: Yes (Hospitalization)
  Sender: Public
  Company Number: None

PATIENT
  Age: 42 Year
  Sex: Female

DRUGS (5)
  1. TACROLIMUS [Suspect]
     Active Substance: TACROLIMUS
     Indication: Organ transplant
     Dosage: FREQUENCY : TWICE A DAY;?
     Route: 048
  2. MELATONIN [Concomitant]
     Active Substance: MELATONIN
  3. MIDOL MAX/STR MENSTRUAL [Concomitant]
  4. TYLENOL [Concomitant]
     Active Substance: ACETAMINOPHEN
  5. MYOCOPHENOLIC ACID [Concomitant]

REACTIONS (3)
  - Hospitalisation [None]
  - Adverse drug reaction [None]
  - Intentional dose omission [None]
